FAERS Safety Report 5128688-0 (Version None)
Quarter: 2006Q4

REPORT INFORMATION
  Report Type: 
  Country: None (occurrence: None)
  Receive Date: 20061011
  Receipt Date: 20060927
  Transmission Date: 20070319
  Serious: Yes (Death)
  Sender: FDA-Public Use
  Company Number: 228315

PATIENT
  Age: 48 Year
  Sex: Male

DRUGS (2)
  1. AVASTIN [Suspect]
     Indication: RENAL CANCER METASTATIC
     Dosage: 855 MG, Q2W, INTRAVENOUS
     Route: 042
     Dates: start: 20060404, end: 20060802
  2. PROLEUKIN [Suspect]
     Indication: RENAL CANCER METASTATIC
     Dosage: 51 MU, Q8H, INTRAVENOUS
     Route: 042
     Dates: start: 20060418, end: 20060802

REACTIONS (5)
  - CARDIOGENIC SHOCK [None]
  - CHEST PAIN [None]
  - CYTOKINE STORM [None]
  - ELECTROMECHANICAL DISSOCIATION [None]
  - RESPIRATORY FAILURE [None]
